FAERS Safety Report 6259422-9 (Version None)
Quarter: 2009Q3

REPORT INFORMATION
  Report Type: 
  Country: None (occurrence: None)
  Receive Date: 20090707
  Receipt Date: 20090629
  Transmission Date: 20100115
  Serious: Yes (Other)
  Sender: FDA-Public Use
  Company Number: US-JNJCH-2009017959

PATIENT
  Age: 16 Month
  Sex: Male
  Weight: 18.1 kg

DRUGS (1)
  1. DESITIN CREAMY DIAPER RASH [Suspect]
     Indication: DERMATITIS DIAPER
     Dosage: TEXT:^FINGERTIP AMOUNT^ ONCE
     Route: 061
     Dates: start: 20090301, end: 20090301

REACTIONS (2)
  - APPLICATION SITE BURN [None]
  - APPLICATION SITE VESICLES [None]
